FAERS Safety Report 7472885-6 (Version None)
Quarter: 2011Q2

REPORT INFORMATION
  Report Type: 
  Country: None (occurrence: None)
  Receive Date: 20110511
  Receipt Date: 20110428
  Transmission Date: 20111010
  Serious: Yes (Other)
  Sender: FDA-Public Use
  Company Number: CN-CELGENEUS-035-AB007-11043653

PATIENT

DRUGS (1)
  1. ABRAXANE [Suspect]
     Route: 051

REACTIONS (14)
  - THROMBOCYTOPENIA [None]
  - HYPOPHOSPHATAEMIA [None]
  - OESOPHAGITIS [None]
  - FEBRILE NEUTROPENIA [None]
  - ANAEMIA [None]
  - NEUROPATHY PERIPHERAL [None]
  - MYALGIA [None]
  - ALOPECIA [None]
  - FATIGUE [None]
  - HYPOTENSION [None]
  - NEUTROPENIA [None]
  - ARTHRALGIA [None]
  - HYPOXIA [None]
  - PERIPHERAL SENSORY NEUROPATHY [None]
